FAERS Safety Report 6738098-8 (Version None)
Quarter: 2010Q2

REPORT INFORMATION
  Report Type: 
  Country: None (occurrence: None)
  Receive Date: 20100520
  Receipt Date: 20100505
  Transmission Date: 20101027
  Serious: Yes (Other)
  Sender: FDA-Public Use
  Company Number: 584767

PATIENT

DRUGS (10)
  1. CARBOPLATIN [Suspect]
     Indication: MEDULLOBLASTOMA
     Dosage: 500 MG/M 2 MILLIGRAM(S) / SQ. METER,
  2. ETOPOSIDE [Suspect]
     Indication: MEDULLOBLASTOMA
     Dosage: NOT REPORTED
  3. CYCLOPHOSPHAMIDE [Suspect]
     Indication: MEDULLOBLASTOMA
  4. CISPLATIN [Suspect]
     Indication: MEDULLOBLASTOMA
  5. THIOTEPA [Suspect]
     Indication: MEDULLOBLASTOMA
     Dosage: 300 MG/M 2 MILLIGRAM (S)/ SQ. METER,
  6. TEMOZOLOMIDE [Suspect]
     Indication: MEDULLOBLASTOMA
  7. ACYCLOVIR SODIUM [Concomitant]
  8. FLUCONAZOLE [Concomitant]
  9. PENTAMIDINE ISETHIONATE [Concomitant]
  10. GRANULOCYTTE COLONY STIMULATING FACTOR [Concomitant]

REACTIONS (5)
  - CONVULSION [None]
  - HAEMATOTOXICITY [None]
  - MUCOSAL INFLAMMATION [None]
  - NEUTROPENIA [None]
  - SEPSIS [None]
